FAERS Safety Report 14975398 (Version 1)
Quarter: 2018Q2

REPORT INFORMATION
  Report Type: Spontaneous
  Country: DK (occurrence: DK)
  Receive Date: 20180605
  Receipt Date: 20180605
  Transmission Date: 20180711
  Serious: Yes (Disabling)
  Sender: FDA-Public Use
  Company Number: DK-MYLANLABS-2018M1036842

PATIENT
  Age: 46 Year
  Sex: Male

DRUGS (2)
  1. MAREVAN [Concomitant]
     Active Substance: WARFARIN SODIUM
     Indication: THROMBOSIS PROPHYLAXIS
     Dosage: STYRKE: 2,5MG^DOSIS: DOSERING EFTER SKRIFTLIG ANVISNING
     Route: 048
  2. LAMOTRIGINE. [Suspect]
     Active Substance: LAMOTRIGINE
     Indication: EPILEPSY
     Dosage: STYRKE: 200MG
     Route: 048
     Dates: start: 2006

REACTIONS (3)
  - Osteoporosis [Unknown]
  - Spinal compression fracture [Unknown]
  - Back pain [Unknown]

NARRATIVE: CASE EVENT DATE: 2014
